FAERS Safety Report 9255464 (Version 1)
Quarter: 2013Q2

REPORT INFORMATION
  Report Type: Report from Study
  Country: CA (occurrence: CA)
  Receive Date: 20130425
  Receipt Date: 20130425
  Transmission Date: 20140414
  Serious: Yes (Other)
  Sender: FDA-Public Use
  Company Number: CA-JNJFOC-20130410752

PATIENT
  Age: 39 Year
  Sex: Male
  Weight: 126.9 kg

DRUGS (5)
  1. REMICADE [Suspect]
     Indication: ANKYLOSING SPONDYLITIS
     Dosage: 24TH INFUSION
     Route: 042
     Dates: start: 20130205
  2. REMICADE [Suspect]
     Indication: ANKYLOSING SPONDYLITIS
     Route: 042
     Dates: start: 20090919
  3. NAPROXEN [Concomitant]
     Route: 065
  4. NEXIUM [Concomitant]
     Route: 065
  5. CORTICOSTEROID [Concomitant]
     Route: 061

REACTIONS (2)
  - Migraine [Recovered/Resolved]
  - Eye haemorrhage [Recovering/Resolving]
